FAERS Safety Report 10374026 (Version 1)
Quarter: 2014Q3

REPORT INFORMATION
  Report Type: Spontaneous
  Country: JP (occurrence: JP)
  Receive Date: 20140810
  Receipt Date: 20140810
  Transmission Date: 20150326
  Serious: Yes (Other)
  Sender: FDA-Public Use
  Company Number: PHHY2010JP096120

PATIENT
  Age: 35 Year
  Sex: Male

DRUGS (4)
  1. GLIVEC [Suspect]
     Active Substance: IMATINIB MESYLATE
     Dosage: 400 MG, UNK
  2. GLIVEC [Suspect]
     Active Substance: IMATINIB MESYLATE
     Indication: CHRONIC MYELOID LEUKAEMIA
     Dates: start: 201006
  3. SPRYCEL [Suspect]
     Active Substance: DASATINIB
  4. SPRYCEL [Suspect]
     Active Substance: DASATINIB
     Dosage: 100 MG, UNK

REACTIONS (5)
  - Muscle spasms [Unknown]
  - Arthralgia [Unknown]
  - Headache [Unknown]
  - Platelet count decreased [Unknown]
  - Myalgia [Unknown]
